FAERS Safety Report 8994546 (Version 2)
Quarter: 2013Q1

REPORT INFORMATION
  Report Type: Spontaneous
  Country: US (occurrence: US)
  Receive Date: 20130102
  Receipt Date: 20130305
  Transmission Date: 20140127
  Serious: No
  Sender: FDA-Public Use
  Company Number: US-AMGEN-USASP2012079618

PATIENT
  Age: 81 Year
  Sex: Female
  Weight: 54.42 kg

DRUGS (3)
  1. ENBREL [Suspect]
     Indication: PSORIASIS
     Dosage: 50 MG, 2 TIMES/WK
     Route: 058
     Dates: start: 20120926
  2. FLUOCINONIDE [Concomitant]
     Dosage: 0.05 %, BID
     Dates: start: 20130128
  3. CLOBETASOL PROPIONATE [Concomitant]
     Dosage: 0.05 %, 1 SOLUTION DAILY.
     Dates: start: 20130128

REACTIONS (2)
  - Alopecia [Not Recovered/Not Resolved]
  - Psoriasis [Unknown]
